FAERS Safety Report 12009997 (Version 1)
Quarter: 2016Q1

REPORT INFORMATION
  Report Type: Other
  Country: GB (occurrence: GB)
  Receive Date: 20160205
  Receipt Date: 20160205
  Transmission Date: 20160526
  Serious: Yes (Hospitalization, Other)
  Sender: FDA-Public Use
  Company Number: GB-CIPLA LTD.-2016GB00851

PATIENT

DRUGS (13)
  1. TOPIRAMATE. [Suspect]
     Active Substance: TOPIRAMATE
     Dosage: DOSAGE FORM: UNSPECIFIED OVERDOSE
     Route: 048
     Dates: start: 20151115, end: 20151115
  2. DIAZEPAM. [Suspect]
     Active Substance: DIAZEPAM
     Dosage: UNK, QD ,OVERDOSE
     Route: 048
     Dates: start: 20151115, end: 20151115
  3. TOPIRAMATE. [Suspect]
     Active Substance: TOPIRAMATE
     Dosage: ,200 MG, QD,DOSAGE FORM: UNSPECIFIED
     Route: 048
     Dates: start: 20151116
  4. DIAZEPAM. [Suspect]
     Active Substance: DIAZEPAM
     Indication: EPILEPSY
     Dosage: 7.5 MG, QD, DOSAGE FORM: UNKNOWN
     Route: 048
     Dates: start: 20030607, end: 20151114
  5. DIAZEPAM. [Suspect]
     Active Substance: DIAZEPAM
     Dosage: 7.5 MG, QD, DOSAGE FORM: UNKNOWN
     Dates: start: 20151116
  6. OXACABAZEPINE [Suspect]
     Active Substance: OXCARBAZEPINE
     Dosage: DOSAGE FORM: UNKNOWN   OVERDOSE
     Route: 048
     Dates: start: 20151115, end: 20151115
  7. TOPIRAMATE. [Suspect]
     Active Substance: TOPIRAMATE
     Indication: EPILEPSY
     Dosage: 200 MG, QD,DOSAGE FORM: UNSPECIFIED
     Route: 048
     Dates: start: 20030211, end: 20151114
  8. FYCOMPA [Suspect]
     Active Substance: PERAMPANEL
     Dosage: 4 MG, QD,DOSAGE FORM: UNKNOWN
     Route: 048
     Dates: start: 20151116, end: 20151216
  9. FYCOMPA [Suspect]
     Active Substance: PERAMPANEL
     Indication: EPILEPSY
     Dosage: 4 MG, QD
     Route: 048
     Dates: start: 20151104, end: 20151114
  10. CITALOPRAM [Concomitant]
     Active Substance: CITALOPRAM HYDROBROMIDE
     Indication: PRODUCT USED FOR UNKNOWN INDICATION
     Dosage: 20 MG, QD
     Route: 048
     Dates: start: 20030607
  11. OXACABAZEPINE [Suspect]
     Active Substance: OXCARBAZEPINE
     Dosage: 1800 MG, QD,DOSAGE FORM: UNKNOWN
     Route: 048
     Dates: start: 20151116
  12. FYCOMPA [Suspect]
     Active Substance: PERAMPANEL
     Dosage: DOSAGE FORM: UNKNOWN OVERDOSE
     Route: 048
     Dates: start: 20151115, end: 20151115
  13. OXACABAZEPINE [Suspect]
     Active Substance: OXCARBAZEPINE
     Indication: EPILEPSY
     Dosage: 1800 MG, QD,DOSAGE FORM: UNKNOWN
     Route: 048
     Dates: start: 20110510, end: 20151114

REACTIONS (3)
  - Suicide attempt [Recovered/Resolved]
  - Depressed mood [Unknown]
  - Intentional overdose [Unknown]

NARRATIVE: CASE EVENT DATE: 201511
